FAERS Safety Report 19716637 (Version 3)
Quarter: 2021Q4

REPORT INFORMATION
  Report Type: Spontaneous
  Country: US (occurrence: US)
  Receive Date: 20210818
  Receipt Date: 20211120
  Transmission Date: 20220303
  Serious: Yes (Hospitalization, Other)
  Sender: FDA-Public Use
  Company Number: US-UNITED THERAPEUTICS-UNT-2021-014970

PATIENT
  Sex: Female
  Weight: 52.154 kg

DRUGS (9)
  1. REMODULIN [Interacting]
     Active Substance: TREPROSTINIL
     Indication: Pulmonary arterial hypertension
     Dosage: UNK, CONTINUING
     Route: 058
     Dates: start: 20210730
  2. REMODULIN [Interacting]
     Active Substance: TREPROSTINIL
     Dosage: 0.017 ?G/KG, CONTINUING
     Route: 058
     Dates: start: 2021
  3. REMODULIN [Interacting]
     Active Substance: TREPROSTINIL
     Dosage: 0.000018 ?G/KG, CONTINUING
     Route: 058
     Dates: start: 20210806
  4. REMODULIN [Interacting]
     Active Substance: TREPROSTINIL
     Dosage: 0.055 ?G/KG, CONTINUING
     Route: 058
     Dates: start: 2021
  5. TYVASO [Suspect]
     Active Substance: TREPROSTINIL
     Indication: Pulmonary arterial hypertension
     Dosage: 18-54 ?G, QID
     Dates: end: 2021
  6. TADALAFIL [Interacting]
     Active Substance: TADALAFIL
     Indication: Product used for unknown indication
     Dosage: UNK
     Route: 065
  7. ADEMPAS [Suspect]
     Active Substance: RIOCIGUAT
     Indication: Product used for unknown indication
     Dosage: 1.5 MG
     Route: 065
  8. WARFARIN [Interacting]
     Active Substance: WARFARIN
     Indication: Product used for unknown indication
     Dosage: UNK
     Route: 065
  9. AMBRISENTAN [Concomitant]
     Active Substance: AMBRISENTAN
     Indication: Product used for unknown indication
     Dosage: UNK
     Route: 065

REACTIONS (11)
  - Seizure [Unknown]
  - Cerebral haemorrhage [Unknown]
  - Drug hypersensitivity [Unknown]
  - Headache [Recovering/Resolving]
  - Pain in jaw [Unknown]
  - Arthralgia [Unknown]
  - Nausea [Unknown]
  - Blood pressure increased [Unknown]
  - Fatigue [Unknown]
  - Drug interaction [Unknown]
  - Hypotension [Unknown]

NARRATIVE: CASE EVENT DATE: 20210101
